FAERS Safety Report 8577902 (Version 4)
Quarter: 2013Q1

REPORT INFORMATION
  Report Type: Spontaneous
  Country: US (occurrence: None)
  Receive Date: 20120518
  Receipt Date: 20130222
  Transmission Date: 20140127
  Serious: Yes (Other)
  Sender: FDA-Public Use
  Company Number: ADR-2012-00501

PATIENT
  Sex: Female

DRUGS (2)
  1. BACLOFEN [Suspect]
     Indication: MUSCLE SPASTICITY
     Dosage: FROM 500 MCG/ML TO 2000 MCG/ML
  2. BACLOFEN [Suspect]
     Indication: CEREBRAL PALSY
     Dosage: FROM 500 MCG/ML TO 2000 MCG/ML

REACTIONS (10)
  - Dizziness [None]
  - Diplopia [None]
  - Gait disturbance [None]
  - Paraesthesia [None]
  - Seroma [None]
  - Urinary tract infection [None]
  - Insomnia [None]
  - Pseudomonas infection [None]
  - Drug effect decreased [None]
  - Orthostatic hypotension [None]
